FAERS Safety Report 10244021 (Version 2)
Quarter: 2014Q2

REPORT INFORMATION
  Report Type: Spontaneous
  Country: US (occurrence: US)
  Receive Date: 20140618
  Receipt Date: 20140626
  Transmission Date: 20141212
  Serious: No
  Sender: FDA-Public Use
  Company Number: US-009507513-1406USA006381

PATIENT
  Age: 34 Year
  Sex: Female

DRUGS (2)
  1. NEXPLANON [Suspect]
     Indication: CONTRACEPTION
     Dosage: UNK
     Route: 059
     Dates: start: 20130605, end: 20130903
  2. NEXPLANON [Suspect]
     Dosage: UNK
     Route: 059
     Dates: start: 20130903

REACTIONS (4)
  - Pain [Recovering/Resolving]
  - Device dislocation [Recovering/Resolving]
  - Pain [Recovering/Resolving]
  - Device dislocation [Recovering/Resolving]
